FAERS Safety Report 20142938 (Version 1)
Quarter: 2021Q4

REPORT INFORMATION
  Report Type: Other
  Country: US (occurrence: None)
  Receive Date: 20211202
  Receipt Date: 20211202
  Transmission Date: 20220303
  Serious: No
  Sender: FDA-Public Use
  Company Number: US-ROCHE-2731699

PATIENT
  Age: 52 Year
  Sex: Male

DRUGS (6)
  1. OSELTAMIVIR [Suspect]
     Active Substance: OSELTAMIVIR
     Indication: Influenza
     Route: 048
  2. BALOXAVIR MARBOXIL [Suspect]
     Active Substance: BALOXAVIR MARBOXIL
     Indication: Influenza
     Dosage: ON DAY 15
     Route: 048
  3. PIPERACILLIN SODIUM\TAZOBACTAM SODIUM [Concomitant]
     Active Substance: PIPERACILLIN SODIUM\TAZOBACTAM SODIUM
     Indication: Influenza
     Route: 042
  4. VANCOMYCIN [Concomitant]
     Active Substance: VANCOMYCIN
     Indication: Influenza
     Route: 048
  5. PERAMIVIR [Concomitant]
     Active Substance: PERAMIVIR
     Indication: Influenza
     Dosage: ON DAY 13
     Route: 042
  6. ZANAMIVIR [Concomitant]
     Active Substance: ZANAMIVIR
     Indication: Influenza

REACTIONS (3)
  - Drug resistance [Unknown]
  - Intentional product use issue [Unknown]
  - Off label use [Unknown]
